FAERS Safety Report 25036507 (Version 1)
Quarter: 2025Q1

REPORT INFORMATION
  Report Type: Spontaneous
  Country: IN (occurrence: IN)
  Receive Date: 20250304
  Receipt Date: 20250304
  Transmission Date: 20250409
  Serious: Yes (Other)
  Sender: MYLAN
  Company Number: IN-MYLANLABS-2025M1017130

PATIENT
  Sex: Male

DRUGS (5)
  1. MYCOPHENOLATE MOFETIL [Suspect]
     Active Substance: MYCOPHENOLATE MOFETIL
     Indication: Prophylaxis against graft versus host disease
     Dosage: 15 MILLIGRAM/KILOGRAM, TID (THREE TIMES DAILY FROM DAY+5 TO DAY +30)
     Dates: start: 2022
  2. FLUDARABINE [Suspect]
     Active Substance: FLUDARABINE PHOSPHATE
     Indication: T-cell type acute leukaemia
  3. TACROLIMUS [Suspect]
     Active Substance: TACROLIMUS
     Indication: Prophylaxis against graft versus host disease
     Dosage: 0.03 MILLIGRAM/KILOGRAM, QD (0.03 MG/KG/DAY IN TWO DIVIDED DOSES FROM DAY +5 ONWARDS)
     Dates: start: 2022
  4. TREOSULFAN [Suspect]
     Active Substance: TREOSULFAN
     Indication: T-cell type acute leukaemia
  5. CYCLOPHOSPHAMIDE [Suspect]
     Active Substance: CYCLOPHOSPHAMIDE
     Indication: Prophylaxis against graft versus host disease
     Dosage: 50 MILLIGRAM/KILOGRAM, QD (ON DAY +3 AND DAY +4)
     Dates: start: 2022

REACTIONS (3)
  - Graft versus host disease in gastrointestinal tract [Unknown]
  - Chronic graft versus host disease in skin [Recovered/Resolved]
  - Drug ineffective [Unknown]
